FAERS Safety Report 14627860 (Version 2)
Quarter: 2018Q1

REPORT INFORMATION
  Report Type: Spontaneous
  Country: FR (occurrence: FR)
  Receive Date: 20180307
  Receipt Date: 20180307
  Transmission Date: 20180509
  Serious: Yes (Hospitalization)
  Sender: FDA-Public Use
  Company Number: FR-CONCORDIA PHARMACEUTICALS INC.-E2B_00010362

PATIENT
  Age: 100 Year
  Sex: Female

DRUGS (9)
  1. TRIATEC 1,25 MG, COMPRIM? [Concomitant]
     Dosage: INCONNUE
     Route: 048
  2. SERESTA 10 MG, COMPRIM? [Concomitant]
     Active Substance: OXAZEPAM
     Dosage: INCONNUE
     Route: 048
  3. EBASTINE [Concomitant]
     Active Substance: EBASTINE
     Dosage: INCONNUE
     Route: 048
  4. DOLIPRANE 500 MG, COMPRIM? [Concomitant]
     Dosage: INCONNUE
     Route: 048
  5. LASILIX 40 MG, COMPRIM? S?CABLE [Concomitant]
     Active Substance: FUROSEMIDE
     Dosage: INCONNUE
     Route: 048
  6. KARDEGIC [Concomitant]
     Active Substance: ASPIRIN DL-LYSINE
     Dosage: INCONNUE
     Route: 048
  7. SEROPRAM (CITALOPRAM HYDROBROMIDE) [Concomitant]
     Active Substance: CITALOPRAM HYDROBROMIDE
     Dosage: INCONNUE
     Route: 048
  8. DIGOXIN. [Suspect]
     Active Substance: DIGOXIN
     Indication: CARDIAC FAILURE
     Route: 048
  9. ZOPICLONE [Concomitant]
     Active Substance: ZOPICLONE
     Dosage: INCONNUE
     Route: 048

REACTIONS (2)
  - Overdose [Recovered/Resolved]
  - Bradycardia [Recovered/Resolved]

NARRATIVE: CASE EVENT DATE: 20180106
